FAERS Safety Report 5366670-9 (Version None)
Quarter: 2007Q2

REPORT INFORMATION
  Report Type: 
  Country: None (occurrence: None)
  Receive Date: 20070622
  Receipt Date: 20060417
  Transmission Date: 20071010
  Serious: No
  Sender: FDA-Public Use
  Company Number: US-ASTRAZENECA-2006UW06779

PATIENT
  Sex: Female

DRUGS (1)
  1. RHINOCORT [Suspect]
     Dosage: 2 SPRAY EACH NOSTRIL ONCE A DAY
     Route: 045

REACTIONS (2)
  - EPISTAXIS [None]
  - RHINORRHOEA [None]
